FAERS Safety Report 12695575 (Version 1)
Quarter: 2016Q3

REPORT INFORMATION
  Report Type: Spontaneous
  Country: US (occurrence: US)
  Receive Date: 20160829
  Receipt Date: 20160829
  Transmission Date: 20161109
  Serious: No
  Sender: FDA-Public Use
  Company Number: US-KALEO, INC-2015SA177319

PATIENT
  Age: 33 Year
  Sex: Female
  Weight: 70.37 kg

DRUGS (1)
  1. AUVI-Q [Suspect]
     Active Substance: EPINEPHRINE
     Indication: HYPERSENSITIVITY
     Route: 065
     Dates: start: 2015, end: 2015

REACTIONS (1)
  - Unevaluable event [Unknown]

NARRATIVE: CASE EVENT DATE: 20150124
